FAERS Safety Report 11640039 (Version 1)
Quarter: 2015Q4

REPORT INFORMATION
  Report Type: Spontaneous
  Country: US (occurrence: US)
  Receive Date: 20151019
  Receipt Date: 20151019
  Transmission Date: 20160304
  Serious: No
  Sender: FDA-Public Use
  Company Number: US-PFIZER INC-2015347421

PATIENT
  Age: 46 Year
  Sex: Female
  Weight: 66 kg

DRUGS (4)
  1. VIMPAT [Concomitant]
     Active Substance: LACOSAMIDE
     Dosage: 600 MG, DAILY
     Route: 048
  2. LYRICA [Suspect]
     Active Substance: PREGABALIN
     Indication: SEIZURE
     Dosage: 200 MG, 3X/DAY
     Route: 048
  3. KEPPRA [Concomitant]
     Active Substance: LEVETIRACETAM
     Dosage: 3000 MG, DAILY DIVIDED INTO MORNING AND NIGHT
     Route: 048
  4. ONFI [Concomitant]
     Active Substance: CLOBAZAM
     Dosage: 40 MG, DAILY
     Route: 048

REACTIONS (1)
  - Conjunctival cyst [Not Recovered/Not Resolved]

NARRATIVE: CASE EVENT DATE: 20150822
